FAERS Safety Report 8069810-6 (Version None)
Quarter: 2012Q1

REPORT INFORMATION
  Report Type: 
  Country: None (occurrence: None)
  Receive Date: 20120125
  Receipt Date: 20120125
  Transmission Date: 20120608
  Serious: Yes (Hospitalization)
  Sender: FDA-Public Use
  Company Number: None

PATIENT
  Age: 44 Year
  Sex: Male
  Weight: 131.54 kg

DRUGS (1)
  1. DISULFIRAM [Suspect]
     Indication: ALCOHOLISM
     Dosage: 250MG
     Route: 048
     Dates: start: 20120121, end: 20120124

REACTIONS (7)
  - FOOD INTERACTION [None]
  - CONFUSIONAL STATE [None]
  - FLUSHING [None]
  - COORDINATION ABNORMAL [None]
  - DYSPNOEA [None]
  - NAUSEA [None]
  - PAIN OF SKIN [None]
